FAERS Safety Report 23975829 (Version 1)
Quarter: 2024Q2

REPORT INFORMATION
  Report Type: Spontaneous
  Country: US (occurrence: US)
  Receive Date: 20240614
  Receipt Date: 20240614
  Transmission Date: 20240716
  Serious: No
  Sender: FDA-Public Use
  Company Number: US-GREER Laboratories, Inc.-2158106

PATIENT
  Age: 50 Year
  Sex: Male

DRUGS (12)
  1. STANDARDIZED MITE MIX DERMATOPHAGOIDES FARINAE AND DERMATOPHAGOIDES PT [Suspect]
     Active Substance: DERMATOPHAGOIDES FARINAE\DERMATOPHAGOIDES PTERONYSSINUS
     Indication: Product used for unknown indication
     Route: 058
  2. TRUE ROUGH MARSH ELDER [Suspect]
     Active Substance: IVA ANNUA POLLEN
     Route: 058
  3. HELMINTHOSPORIUM SOLANI [Suspect]
     Active Substance: HELMINTHOSPORIUM SOLANI
     Route: 058
  4. RHIZOPUS STOLONIFER [Suspect]
     Active Substance: RHIZOPUS STOLONIFER
     Route: 058
  5. PHOMA BETAE [Suspect]
     Active Substance: PLEOSPORA BETAE
     Route: 058
  6. SAROCLADIUM STRICTUM [Suspect]
     Active Substance: SAROCLADIUM STRICTUM
     Route: 058
  7. PENICILLIUM CHRYSOGENUM VAR CHRYSOGENUM [Suspect]
     Active Substance: PENICILLIUM CHRYSOGENUM VAR. CHRYSOGENUM
     Route: 058
  8. FUSARIUM SOLANI [Suspect]
     Active Substance: HAEMATONECTRIA HAEMATOCOCCA
     Route: 058
  9. EPICOCCUM NIGRUM [Suspect]
     Active Substance: EPICOCCUM NIGRUM
     Route: 058
  10. BIPOLARIS SOROKINIANA [Suspect]
     Active Substance: COCHLIOBOLUS SATIVUS
     Route: 058
  11. STANDARDIZED CAT HAIR [Suspect]
     Active Substance: FELIS CATUS HAIR
     Route: 058
  12. VIRGINIA LIVE OAK POLLEN [Suspect]
     Active Substance: QUERCUS VIRGINIANA POLLEN
     Route: 058

REACTIONS (6)
  - Influenza like illness [Recovered/Resolved]
  - Dyspnoea [Recovered/Resolved]
  - Asthenia [Recovered/Resolved]
  - Dizziness [Recovered/Resolved]
  - Somnolence [Recovered/Resolved]
  - Head discomfort [Recovered/Resolved]

NARRATIVE: CASE EVENT DATE: 20231010
